FAERS Safety Report 7809232-3 (Version None)
Quarter: 2011Q4

REPORT INFORMATION
  Report Type: 
  Country: None (occurrence: None)
  Receive Date: 20111012
  Receipt Date: 20111005
  Transmission Date: 20120403
  Serious: Yes (Hospitalization, Other)
  Sender: FDA-Public Use
  Company Number: US-PFIZER INC-2011239034

PATIENT
  Age: 81 Year
  Sex: Female

DRUGS (4)
  1. FUROSEMIDE [Concomitant]
     Dosage: UNK
  2. METFORMIN HYDROCHLORIDE [Concomitant]
     Dosage: UNK
  3. DIGOXIN [Suspect]
     Dosage: 0.125 MG, DAILY
  4. RAMIPRIL [Suspect]
     Dosage: 10 MG, DAILY

REACTIONS (7)
  - ELECTROCARDIOGRAM QT SHORTENED [None]
  - DYSPNOEA [None]
  - HYPERKALAEMIA [None]
  - CARDIOACTIVE DRUG LEVEL INCREASED [None]
  - ASTHENIA [None]
  - ELECTROCARDIOGRAM T WAVE PEAKED [None]
  - NODAL RHYTHM [None]
